FAERS Safety Report 7397356-7 (Version None)
Quarter: 2011Q2

REPORT INFORMATION
  Report Type: 
  Country: None (occurrence: None)
  Receive Date: 20110406
  Receipt Date: 20110330
  Transmission Date: 20111010
  Serious: Yes (Hospitalization)
  Sender: FDA-Public Use
  Company Number: DE-PFIZER INC-2006013259

PATIENT
  Age: 64 Year
  Sex: Male

DRUGS (5)
  1. AMLODIPINE BESYLATE [Concomitant]
     Route: 048
     Dates: start: 19950101
  2. DECODERM [Concomitant]
     Route: 065
     Dates: start: 20060101
  3. PANTOZOL [Concomitant]
     Route: 048
     Dates: start: 20051001
  4. SUNITINIB MALATE [Suspect]
     Indication: RENAL CANCER METASTATIC
     Dosage: 50 MG, UNK
     Route: 048
     Dates: start: 20060120, end: 20060122
  5. ESIDRIX [Concomitant]
     Route: 048
     Dates: start: 19950101

REACTIONS (1)
  - CHOLECYSTITIS [None]
